FAERS Safety Report 16880428 (Version 1)
Quarter: 2019Q4

REPORT INFORMATION
  Report Type: Spontaneous
  Country: US (occurrence: US)
  Receive Date: 20191002
  Receipt Date: 20191002
  Transmission Date: 20200122
  Serious: Yes (Death)
  Sender: FDA-Public Use
  Company Number: None

PATIENT
  Sex: Male

DRUGS (10)
  1. PROLIA [Suspect]
     Active Substance: DENOSUMAB
     Indication: SENILE OSTEOPOROSIS
     Dosage: ?          OTHER FREQUENCY:Q6MONTHS;?
     Route: 058
     Dates: start: 20180404
  2. ASPIRIN. [Concomitant]
     Active Substance: ASPIRIN
  3. ALLOPURINOL. [Concomitant]
     Active Substance: ALLOPURINOL
  4. FISH OIL [Concomitant]
     Active Substance: FISH OIL
  5. TIMOLOL. [Concomitant]
     Active Substance: TIMOLOL
  6. LEVOTHYROXIN [Concomitant]
     Active Substance: LEVOTHYROXINE
  7. CAVEDILOL [Concomitant]
     Active Substance: CARVEDILOL
  8. CENTRUM [Concomitant]
     Active Substance: VITAMINS
  9. OMEPRAZOLE. [Concomitant]
     Active Substance: OMEPRAZOLE
  10. CITRACAL [Concomitant]
     Active Substance: CALCIUM CITRATE

REACTIONS (1)
  - Death [None]
